FAERS Safety Report 7945280-0 (Version None)
Quarter: 2011Q4

REPORT INFORMATION
  Report Type: 
  Country: None (occurrence: None)
  Receive Date: 20111129
  Receipt Date: 20101111
  Transmission Date: 20120403
  Serious: No
  Sender: FDA-Public Use
  Company Number: US-GLAXOSMITHKLINE-A0892042A

PATIENT
  Age: 31 Year
  Sex: Female

DRUGS (3)
  1. WELLBUTRIN SR [Suspect]
     Indication: DEPRESSION
     Dosage: 200MG TWICE PER DAY
     Route: 048
     Dates: start: 20091101
  2. ESTRADIOL [Concomitant]
  3. ACYCLOVIR [Concomitant]

REACTIONS (2)
  - DRUG INEFFECTIVE [None]
  - PALPITATIONS [None]
